FAERS Safety Report 23039298 (Version 1)
Quarter: 2023Q4

REPORT INFORMATION
  Report Type: Spontaneous
  Country: US (occurrence: US)
  Receive Date: 20231006
  Receipt Date: 20231006
  Transmission Date: 20240109
  Serious: Yes (Other)
  Sender: FDA-Public Use
  Company Number: US-Indivior Limited-INDV-137717-2023

PATIENT
  Age: 36 Year
  Sex: Female

DRUGS (1)
  1. SUBLOCADE [Suspect]
     Active Substance: BUPRENORPHINE
     Indication: Product used for unknown indication
     Dosage: 300 MILLIGRAM, QMO
     Route: 058
     Dates: start: 20230118

REACTIONS (3)
  - Injection site infection [Not Recovered/Not Resolved]
  - Injection site pain [Recovered/Resolved]
  - Intentional misuse of drug delivery system [Recovered/Resolved]

NARRATIVE: CASE EVENT DATE: 20230101
